FAERS Safety Report 8125446-X (Version None)
Quarter: 2012Q1

REPORT INFORMATION
  Report Type: 
  Country: None (occurrence: None)
  Receive Date: 20120209
  Receipt Date: 20120125
  Transmission Date: 20120608
  Serious: Yes (Hospitalization)
  Sender: FDA-Public Use
  Company Number: PL-UCBSA-050492

PATIENT
  Age: 36 Year
  Sex: Male

DRUGS (1)
  1. CERTOLIZUMAB PEGOL [Suspect]
     Indication: SPONDYLITIS
     Dosage: NO OF DOSES RECEIVED-36
     Route: 058
     Dates: start: 20101104, end: 20111007

REACTIONS (1)
  - TUBERCULOSIS [None]
